FAERS Safety Report 9253954 (Version 1)
Quarter: 2013Q2

REPORT INFORMATION
  Report Type: Spontaneous
  Country: US (occurrence: None)
  Receive Date: 20130422
  Receipt Date: 20130422
  Transmission Date: 20140414
  Serious: Yes (Other)
  Sender: FDA-Public Use
  Company Number: None

PATIENT
  Age: 61 Year
  Sex: Female

DRUGS (1)
  1. LEVAQUIN (LEVOFLOXACIN) [Suspect]
     Indication: BRONCHITIS
     Dosage: A DAY
     Route: 048
     Dates: start: 20130406, end: 20130418

REACTIONS (4)
  - Hypoaesthesia [None]
  - Feeling cold [None]
  - Chills [None]
  - Back pain [None]
